FAERS Safety Report 14624638 (Version 3)
Quarter: 2018Q1

REPORT INFORMATION
  Report Type: Spontaneous
  Country: JP (occurrence: JP)
  Receive Date: 20180312
  Receipt Date: 20180319
  Transmission Date: 20180509
  Serious: Yes (Life-Threatening, Hospitalization, Other)
  Sender: FDA-Public Use
  Company Number: JP-ELI_LILLY_AND_COMPANY-JP201802003287

PATIENT
  Age: 46 Year
  Sex: Male
  Weight: 49 kg

DRUGS (11)
  1. CYRAMZA [Suspect]
     Active Substance: RAMUCIRUMAB
     Indication: GASTRIC CANCER STAGE IV
     Dosage: 370 UNK, UNK
     Route: 041
     Dates: start: 20170413, end: 20171019
  2. ABRAXANE [Concomitant]
     Active Substance: PACLITAXEL
     Indication: GASTRIC CANCER STAGE IV
     Dosage: 150 MG, OTHER
     Route: 041
     Dates: start: 20171101, end: 20180118
  3. CYRAMZA [Suspect]
     Active Substance: RAMUCIRUMAB
     Dosage: 400 MG, OTHER
     Route: 041
     Dates: start: 20171101, end: 20180118
  4. LOXONIN [Suspect]
     Active Substance: LOXOPROFEN SODIUM
     Indication: PAIN
     Dosage: 1 DF, TID
     Route: 048
     Dates: start: 201712
  5. DEXART [Concomitant]
     Active Substance: DEXAMETHASONE SODIUM PHOSPHATE
     Dosage: UNK
     Route: 065
     Dates: start: 20170413, end: 20171019
  6. ABRAXANE [Concomitant]
     Active Substance: PACLITAXEL
     Dosage: 150 UG, OTHER
     Route: 041
     Dates: start: 20180222
  7. NARUSUS [Concomitant]
     Indication: PAIN
     Dosage: 1 DF, EACH EVENING
     Route: 048
     Dates: start: 20180111
  8. DEXART [Concomitant]
     Active Substance: DEXAMETHASONE SODIUM PHOSPHATE
     Dosage: UNK
     Route: 065
     Dates: start: 20171101, end: 20180118
  9. MUCOSTA [Concomitant]
     Active Substance: REBAMIPIDE
     Indication: PAIN
     Dosage: 1 DF, TID
     Route: 048
     Dates: start: 201712
  10. PACLITAXEL. [Concomitant]
     Active Substance: PACLITAXEL
     Indication: GASTRIC CANCER
     Dosage: 90 MG, OTHER
     Route: 065
     Dates: start: 20170413, end: 20171019
  11. TAKECAB [Concomitant]
     Active Substance: VONOPRAZAN FUMURATE
     Indication: PROPHYLAXIS AGAINST GASTROINTESTINAL ULCER
     Dosage: 1 DF, EACH EVENING
     Route: 048
     Dates: start: 201612

REACTIONS (3)
  - Pneumonia aspiration [Recovering/Resolving]
  - Tumour haemorrhage [Recovered/Resolved]
  - Malignant neoplasm progression [Unknown]

NARRATIVE: CASE EVENT DATE: 20170705
